FAERS Safety Report 6639580-4 (Version None)
Quarter: 2010Q1

REPORT INFORMATION
  Report Type: 
  Country: None (occurrence: None)
  Receive Date: 20100318
  Receipt Date: 20100309
  Transmission Date: 20100710
  Serious: Yes (Hospitalization)
  Sender: FDA-Public Use
  Company Number: US-JNJFOC-20100303379

PATIENT
  Sex: Female
  Weight: 71.67 kg

DRUGS (4)
  1. DURAGESIC-100 [Suspect]
     Indication: PAIN
     Dosage: 100+50
     Route: 062
  2. DURAGESIC-100 [Suspect]
     Dosage: 50+100UG/ HR
     Route: 062
  3. MORPHINE [Concomitant]
     Indication: PAIN
     Dosage: 0.5CC
     Route: 048
  4. DEMEROL [Concomitant]
     Indication: PAIN
     Route: 048

REACTIONS (5)
  - DRUG INEFFECTIVE [None]
  - MUSCLE SPASMS [None]
  - PAIN [None]
  - RESTLESS LEGS SYNDROME [None]
  - SPINAL COMPRESSION FRACTURE [None]
